FAERS Safety Report 8059598-7 (Version None)
Quarter: 2012Q1

REPORT INFORMATION
  Report Type: 
  Country: None (occurrence: None)
  Receive Date: 20120120
  Receipt Date: 20120110
  Transmission Date: 20120608
  Serious: Yes (Other)
  Sender: FDA-Public Use
  Company Number: PHEH2006US01214

PATIENT
  Sex: Female
  Weight: 33.4 kg

DRUGS (5)
  1. EXJADE [Suspect]
     Dosage: 1500 MG, DAILY
     Route: 048
  2. PENICILLIN VK [Concomitant]
     Indication: PROPHYLAXIS
     Dosage: 250 MG, BID
     Route: 048
     Dates: start: 19940601
  3. EXJADE [Suspect]
     Dosage: 625 MG, QD
     Route: 048
     Dates: start: 20060124
  4. ASPIRIN [Concomitant]
     Indication: CEREBROVASCULAR DISORDER
     Dosage: 81 MG, QD
     Route: 048
     Dates: start: 20030808
  5. EXJADE [Suspect]
     Indication: SICKLE CELL ANAEMIA
     Dosage: 1250 MG, QD
     Route: 048
     Dates: start: 20060108, end: 20060120

REACTIONS (11)
  - ALANINE AMINOTRANSFERASE INCREASED [None]
  - DENTAL CARIES [None]
  - CHROMATURIA [None]
  - BILIRUBIN CONJUGATED INCREASED [None]
  - JAUNDICE [None]
  - TOOTHACHE [None]
  - HEPATITIS [None]
  - ABDOMINAL PAIN [None]
  - BLOOD BILIRUBIN INCREASED [None]
  - INCORRECT DOSE ADMINISTERED [None]
  - ASPARTATE AMINOTRANSFERASE INCREASED [None]
